FAERS Safety Report 7720558-4 (Version None)
Quarter: 2011Q3

REPORT INFORMATION
  Report Type: 
  Country: None (occurrence: None)
  Receive Date: 20110831
  Receipt Date: 20110831
  Transmission Date: 20111222
  Serious: Yes (Other)
  Sender: FDA-Public Use
  Company Number: None

PATIENT
  Sex: Male
  Weight: 119.74 kg

DRUGS (1)
  1. LOSARTAN POTASSIUM [Suspect]
     Dosage: 50 MG
     Route: 048
     Dates: start: 20110825, end: 20110829

REACTIONS (17)
  - DIZZINESS [None]
  - SENSATION OF HEAVINESS [None]
  - MUSCULOSKELETAL CHEST PAIN [None]
  - CHEST PAIN [None]
  - DRY THROAT [None]
  - BLOOD GLUCOSE DECREASED [None]
  - COUGH [None]
  - THROAT IRRITATION [None]
  - BACK PAIN [None]
  - HEADACHE [None]
  - VERTIGO [None]
  - LYMPHADENOPATHY [None]
  - FALL [None]
  - PNEUMONIA [None]
  - PARAESTHESIA [None]
  - MUSCULOSKELETAL DISCOMFORT [None]
  - EAR PAIN [None]
